FAERS Safety Report 19287004 (Version 1)
Quarter: 2021Q2

REPORT INFORMATION
  Report Type: Spontaneous
  Country: CA (occurrence: CA)
  Receive Date: 20210521
  Receipt Date: 20210521
  Transmission Date: 20210717
  Serious: Yes (Hospitalization, Disabling)
  Sender: FDA-Public Use
  Company Number: CA-MICRO LABS LIMITED-ML2021-01586

PATIENT
  Age: 51 Year
  Sex: Male

DRUGS (10)
  1. METFORMIN [Suspect]
     Active Substance: METFORMIN HYDROCHLORIDE
  2. PFIZER?BIONTECH COVID?19 VACCINE [Suspect]
     Active Substance: TOZINAMERAN
     Indication: COVID-19 IMMUNISATION
  3. CLOZAPINE. [Suspect]
     Active Substance: CLOZAPINE
     Dosage: 3 MONTHS PREVIOUS
     Route: 042
  4. FENOFIBRIC ACID. [Suspect]
     Active Substance: FENOFIBRIC ACID
  5. CLOZAPINE. [Suspect]
     Active Substance: CLOZAPINE
     Dosage: DECREASED 300 MG/D WITH A PLAN TO MONITOR HIS CLOZAPINE LEVEL MONTHLY
     Route: 042
  6. CLOZAPINE. [Suspect]
     Active Substance: CLOZAPINE
     Dosage: EVENING
  7. LINAGLIPTIN [Suspect]
     Active Substance: LINAGLIPTIN
  8. CLOZAPINE. [Suspect]
     Active Substance: CLOZAPINE
     Indication: SCHIZOAFFECTIVE DISORDER
  9. PANTOPRAZOLE [Suspect]
     Active Substance: PANTOPRAZOLE
  10. DIVALPROEX [Suspect]
     Active Substance: DIVALPROEX SODIUM

REACTIONS (2)
  - Drug interaction [Unknown]
  - Toxicity to various agents [Unknown]
